FAERS Safety Report 4459101-4 (Version None)
Quarter: 2004Q3

REPORT INFORMATION
  Report Type: 
  Country: None (occurrence: None)
  Receive Date: 20040927
  Receipt Date: 20040915
  Transmission Date: 20050211
  Serious: Yes (Death)
  Sender: FDA-Public Use
  Company Number: JP-JNJFOC-20040905790

PATIENT
  Sex: Male

DRUGS (3)
  1. FENTANYL [Suspect]
     Indication: CANCER PAIN
     Route: 062
     Dates: start: 20040301, end: 20040313
  2. LOXOPROFEN SODIUM [Concomitant]
     Indication: CANCER PAIN
     Dosage: 1.5 (UNSPECIFIED UNIT) DOSAGE FORM/DAY
     Route: 049
     Dates: start: 20040308, end: 20040312
  3. MORPHINE HYDROCHLORIDE [Concomitant]
     Indication: CANCER PAIN

REACTIONS (2)
  - MALIGNANT NEOPLASM PROGRESSION [None]
  - METASTASES TO LYMPH NODES [None]
